FAERS Safety Report 4767748-0 (Version None)
Quarter: 2005Q3

REPORT INFORMATION
  Report Type: 
  Country: None (occurrence: None)
  Receive Date: 20050912
  Receipt Date: 20050829
  Transmission Date: 20060218
  Serious: Yes (Hospitalization)
  Sender: FDA-Public Use
  Company Number: DSA_26941_2005

PATIENT
  Age: 39 Year
  Sex: Female

DRUGS (2)
  1. TAVOR [Suspect]
     Dosage: 25 MG ONCE SL
     Route: 060
     Dates: start: 20050826, end: 20050826
  2. ZOLOFT [Suspect]
     Dosage: 2500 MG ONCE PO
     Route: 048
     Dates: start: 20050826, end: 20050826

REACTIONS (4)
  - INTENTIONAL MISUSE [None]
  - MULTIPLE DRUG OVERDOSE [None]
  - SOMNOLENCE [None]
  - TACHYCARDIA [None]
